FAERS Safety Report 7225516-4 (Version None)
Quarter: 2011Q1

REPORT INFORMATION
  Report Type: 
  Country: None (occurrence: None)
  Receive Date: 20110113
  Receipt Date: 20110107
  Transmission Date: 20110831
  Serious: Yes (Other)
  Sender: FDA-Public Use
  Company Number: US-AMGEN-USASP2011000341

PATIENT

DRUGS (2)
  1. NPLATE [Suspect]
     Indication: IDIOPATHIC THROMBOCYTOPENIC PURPURA
     Dosage: 8 A?G/KG, UNK
     Dates: start: 20081203
  2. NPLATE [Suspect]
     Dates: start: 20081203

REACTIONS (1)
  - THROMBOCYTOPENIA [None]
